FAERS Safety Report 9996245 (Version 1)
Quarter: 2014Q1

REPORT INFORMATION
  Report Type: Spontaneous
  Country: US (occurrence: US)
  Receive Date: 20140311
  Receipt Date: 20140311
  Transmission Date: 20141002
  Serious: No
  Sender: FDA-Public Use
  Company Number: US-GILEAD-2014-0096306

PATIENT
  Age: 74 Year
  Sex: Female

DRUGS (7)
  1. LETAIRIS [Suspect]
     Indication: PULMONARY ARTERIAL HYPERTENSION
     Dosage: 5 MG, QD
     Route: 065
     Dates: start: 20120525
  2. ADCIRCA [Concomitant]
     Dosage: 40 MG, QD
  3. LASIX                              /00032601/ [Concomitant]
     Indication: OEDEMA PERIPHERAL
  4. NORVASC [Concomitant]
  5. CARDIZEM                           /00489702/ [Concomitant]
  6. PLAVIX [Concomitant]
  7. POTASSIUM [Concomitant]
     Indication: OEDEMA PERIPHERAL

REACTIONS (1)
  - Skin discolouration [Not Recovered/Not Resolved]
